FAERS Safety Report 25148443 (Version 1)
Quarter: 2025Q2

REPORT INFORMATION
  Report Type: Spontaneous
  Country: US (occurrence: US)
  Receive Date: 20250402
  Receipt Date: 20250402
  Transmission Date: 20250717
  Serious: Yes (Hospitalization, Other)
  Sender: ROCHE
  Company Number: US-ROCHE-10000236233

PATIENT
  Age: 44 Year
  Sex: Female

DRUGS (1)
  1. AVASTIN [Suspect]
     Active Substance: BEVACIZUMAB
     Indication: Inflammation
     Route: 065
     Dates: start: 20240905, end: 20240905

REACTIONS (7)
  - Off label use [Unknown]
  - Fall [Recovered/Resolved]
  - Incontinence [Not Recovered/Not Resolved]
  - Depression [Not Recovered/Not Resolved]
  - Paralysis [Not Recovered/Not Resolved]
  - Cerebrovascular accident [Not Recovered/Not Resolved]
  - Spinal stroke [Not Recovered/Not Resolved]

NARRATIVE: CASE EVENT DATE: 20240905
